FAERS Safety Report 21658498 (Version 1)
Quarter: 2022Q4

REPORT INFORMATION
  Report Type: Other
  Country: FR (occurrence: FR)
  Receive Date: 20221129
  Receipt Date: 20221129
  Transmission Date: 20230113
  Serious: Yes (Other)
  Sender: FDA-Public Use
  Company Number: FR-PHARMAAND-2022PHR00261

PATIENT
  Age: 47 Year
  Sex: Male

DRUGS (2)
  1. PEGASYS [Suspect]
     Active Substance: PEGINTERFERON ALFA-2A
     Indication: Polycythaemia vera
     Dosage: 90 MG EVERY 15 DAYS
     Route: 058
     Dates: start: 201903
  2. KARDEGIC [Concomitant]
     Active Substance: ASPIRIN DL-LYSINE

REACTIONS (5)
  - Lymphadenopathy [Not Recovered/Not Resolved]
  - Scrotal oedema [Not Recovered/Not Resolved]
  - Injection site erythema [Recovered/Resolved]
  - Injection site nodule [Recovered/Resolved]
  - Off label use [Unknown]

NARRATIVE: CASE EVENT DATE: 20190301
